FAERS Safety Report 9759532 (Version 1)
Quarter: 2013Q4

REPORT INFORMATION
  Report Type: Spontaneous
  Country: BR (occurrence: BR)
  Receive Date: 20131216
  Receipt Date: 20131216
  Transmission Date: 20140711
  Serious: Yes (Hospitalization)
  Sender: FDA-Public Use
  Company Number: BR-SA-2013SA127476

PATIENT
  Sex: Female

DRUGS (1)
  1. LANTUS [Suspect]
     Indication: DIABETES MELLITUS
     Route: 065

REACTIONS (3)
  - Renal failure chronic [Recovering/Resolving]
  - Unevaluable event [Recovering/Resolving]
  - Drug dose omission [Unknown]
